FAERS Safety Report 14878209 (Version 1)
Quarter: 2018Q2

REPORT INFORMATION
  Report Type: Report from Study
  Country: ES (occurrence: ES)
  Receive Date: 20180510
  Receipt Date: 20180510
  Transmission Date: 20180711
  Serious: Yes (Hospitalization)
  Sender: FDA-Public Use
  Company Number: ES-TEVA-2018-ES-891682

PATIENT
  Age: 28 Year
  Sex: Male

DRUGS (5)
  1. FLUCONAZOL [Suspect]
     Active Substance: FLUCONAZOLE
     Dosage: 400 MG /DIA
     Route: 048
     Dates: start: 20170601, end: 20170628
  2. TRETINOINA (155A) [Suspect]
     Active Substance: TRETINOIN
     Indication: ACUTE PROMYELOCYTIC LEUKAEMIA
     Dosage: 50MG/12H
     Route: 048
     Dates: start: 20170601, end: 20170630
  3. DEXAMETASONA (722A) [Concomitant]
     Active Substance: DEXAMETHASONE
     Dosage: 4MG / 12 H IN DOWN DOSAGE
     Route: 048
     Dates: start: 20170601
  4. IDARRUBICINA (THIRD PRODUCTS) [Suspect]
     Active Substance: IDARUBICIN HYDROCHLORIDE
     Indication: ACUTE PROMYELOCYTIC LEUKAEMIA
     Route: 065
     Dates: start: 20170602, end: 20170609
  5. ACICLOVIR [Concomitant]
     Active Substance: ACYCLOVIR
     Route: 048
     Dates: start: 20170601

REACTIONS (1)
  - Hepatitis acute [Recovered/Resolved]

NARRATIVE: CASE EVENT DATE: 20170605
